FAERS Safety Report 8575904 (Version 2)
Quarter: 2012Q4

REPORT INFORMATION
  Report Type: 
  Country: IN (occurrence: IN)
  Receive Date: 20120913
  Receipt Date: 20121004
  Transmission Date: 20130627
  Serious: Yes (Death)
  Sender: FDA-Public Use
  Company Number: PHHY2012IN043272

PATIENT
  Sex: Female

DRUGS (1)
  1. SEBIVO [Suspect]
     Dosage: 600 mg, UNK
     Route: 048

REACTIONS (2)
  - Death [Fatal]
  - Drug ineffective [Unknown]
